FAERS Safety Report 6402527-X (Version None)
Quarter: 2009Q4

REPORT INFORMATION
  Report Type: 
  Country: None (occurrence: None)
  Receive Date: 20091009
  Receipt Date: 20090930
  Transmission Date: 20100525
  Serious: Yes (Hospitalization, Other)
  Sender: FDA-Public Use
  Company Number: ADR34522009

PATIENT
  Age: 34 Year
  Sex: Female

DRUGS (3)
  1. CIPROFLOXACIN [Suspect]
     Indication: URINARY TRACT INFECTION
  2. CEFUROXIME [Concomitant]
  3. LEVONORGESTREL [Concomitant]

REACTIONS (10)
  - ABDOMINAL PAIN LOWER [None]
  - AMENORRHOEA [None]
  - DEVICE DISLOCATION [None]
  - DRUG INEFFECTIVE [None]
  - NAUSEA [None]
  - NO THERAPEUTIC RESPONSE [None]
  - STAPHYLOCOCCAL SEPSIS [None]
  - SUPRAPUBIC PAIN [None]
  - URINARY TRACT INFECTION [None]
  - VOMITING [None]
